FAERS Safety Report 18573975 (Version 1)
Quarter: 2020Q4

REPORT INFORMATION
  Report Type: Spontaneous
  Country: US (occurrence: US)
  Receive Date: 20201202
  Receipt Date: 20201202
  Transmission Date: 20210114
  Serious: Yes (Hospitalization)
  Sender: FDA-Public Use
  Company Number: None

PATIENT
  Age: 73 Year
  Sex: Male
  Weight: 73.48 kg

DRUGS (2)
  1. APIXABAN (APIXABAN 5MG TAB) [Suspect]
     Active Substance: APIXABAN
     Indication: ATRIAL FIBRILLATION
     Route: 048
     Dates: start: 20200527, end: 20200530
  2. APIXABAN (APIXABAN 5MG TAB) [Suspect]
     Active Substance: APIXABAN
     Route: 042
     Dates: start: 20200505, end: 20200521

REACTIONS (4)
  - Gastric haemorrhage [None]
  - Retroperitoneal haematoma [None]
  - Haemoglobin decreased [None]
  - Hypotension [None]

NARRATIVE: CASE EVENT DATE: 20200530
